FAERS Safety Report 16178668 (Version 5)
Quarter: 2019Q2

REPORT INFORMATION
  Report Type: Report from Study
  Country: FR (occurrence: FR)
  Receive Date: 20190410
  Receipt Date: 20190604
  Transmission Date: 20190711
  Serious: Yes (Death, Hospitalization)
  Sender: FDA-Public Use
  Company Number: FR-ROCHE-2299511

PATIENT
  Age: 69 Year
  Sex: Male
  Weight: 110 kg

DRUGS (18)
  1. PARACETAMOL [Concomitant]
     Active Substance: ACETAMINOPHEN
     Indication: HAEMORRHOIDS
     Route: 065
     Dates: start: 20190109
  2. OGASTORO [Concomitant]
     Active Substance: LANSOPRAZOLE
     Indication: HAEMORRHOIDS
     Route: 048
     Dates: start: 20181003
  3. SMECTA [Concomitant]
     Active Substance: MONTMORILLONITE
     Indication: DIARRHOEA
     Route: 065
     Dates: start: 20181031
  4. PRIMPERAN [Concomitant]
     Active Substance: METOCLOPRAMIDE HYDROCHLORIDE
     Indication: NAUSEA
     Route: 065
     Dates: start: 20181130
  5. POLARAMINE [Concomitant]
     Active Substance: DEXCHLORPHENIRAMINE MALEATE
     Indication: HYPERHIDROSIS
     Route: 042
     Dates: start: 20181003
  6. SPASFON [PHLOROGLUCINOL;TRIMETHYLPHLOROGLUCINOL] [Concomitant]
     Active Substance: PHLOROGLUCINOL\1,3,5-TRIMETHOXYBENZENE
     Indication: ABDOMINAL PAIN
     Route: 065
     Dates: start: 20181031
  7. COBIMETINIB. [Suspect]
     Active Substance: COBIMETINIB
     Indication: MALIGNANT MELANOMA
     Dosage: COBIMETINIB 60 MG TABLETS ORALLY ONCE DAILY ON A 21 DAYS ON, 7 DAYS OFF SCHEDULE (AS PER PROTOCOL).
     Route: 048
     Dates: start: 20180906
  8. DAFALGAN [Concomitant]
     Active Substance: ACETAMINOPHEN
     Indication: ABDOMINAL PAIN
     Dosage: DOSE: 1 UNIT
     Route: 048
     Dates: start: 20181003
  9. LANSOYL [Concomitant]
     Active Substance: MINERAL OIL
     Indication: CONSTIPATION
     Route: 065
     Dates: start: 20190109
  10. VOGALENE [Concomitant]
     Active Substance: METOPIMAZINE
     Indication: NAUSEA
     Dosage: DOSE: 1 UNIT
     Route: 048
     Dates: start: 20181003
  11. TITANOREINE [CHONDRUS CRISPUS;LIDOCAINE;TITANIUM DIOXIDE;ZINC OXIDE] [Concomitant]
     Indication: HAEMORRHOIDS
     Route: 065
     Dates: start: 20190109
  12. FLUCONAZOLE. [Concomitant]
     Active Substance: FLUCONAZOLE
     Route: 065
     Dates: start: 20190402
  13. PANTOPRAZOLE [Concomitant]
     Active Substance: PANTOPRAZOLE
     Indication: GASTROINTESTINAL OBSTRUCTION
     Route: 065
     Dates: start: 20190409
  14. ATEZOLIZUMAB. [Suspect]
     Active Substance: ATEZOLIZUMAB
     Indication: MALIGNANT MELANOMA
     Dosage: ATEZOLIZUMAB 840 MG AS IV INFUSION ONCE IN EVERY 2 WEEKS (AS PER PROTOCOL).?DATE OF MOST RECENT DOSE
     Route: 042
     Dates: start: 20180906
  15. EUPANTOL [Concomitant]
     Active Substance: PANTOPRAZOLE SODIUM
     Indication: LIPASE INCREASED
     Route: 048
     Dates: start: 20181212
  16. MOTILIUM [Concomitant]
     Active Substance: DOMPERIDONE
     Indication: NAUSEA
     Route: 065
     Dates: start: 20181031
  17. PARACETAMOL [Concomitant]
     Active Substance: ACETAMINOPHEN
     Indication: HYPERHIDROSIS
     Route: 042
     Dates: start: 20181003
  18. TIORFAN [Concomitant]
     Active Substance: RACECADOTRIL
     Indication: DIARRHOEA
     Route: 065
     Dates: start: 20181116

REACTIONS (2)
  - Pulmonary embolism [Fatal]
  - General physical condition abnormal [Recovered/Resolved with Sequelae]

NARRATIVE: CASE EVENT DATE: 20190402
